FAERS Safety Report 24823856 (Version 1)
Quarter: 2025Q1

REPORT INFORMATION
  Report Type: Spontaneous
  Country: US (occurrence: US)
  Receive Date: 20250109
  Receipt Date: 20250109
  Transmission Date: 20250408
  Serious: No
  Sender: STRIDES
  Company Number: US-STRIDES ARCOLAB LIMITED-2024SP007639

PATIENT
  Age: 68 Year
  Sex: Male

DRUGS (12)
  1. DOXYCYCLINE [Suspect]
     Active Substance: DOXYCYCLINE
     Indication: Whipple^s disease
     Route: 065
  2. COLCHICINE [Concomitant]
     Active Substance: COLCHICINE
     Indication: Pericarditis
     Route: 065
  3. COLCHICINE [Concomitant]
     Active Substance: COLCHICINE
     Indication: Immunosuppressant drug therapy
  4. METHOTREXATE [Concomitant]
     Active Substance: METHOTREXATE
     Indication: Autoinflammatory disease
     Route: 065
  5. METHOTREXATE [Concomitant]
     Active Substance: METHOTREXATE
     Indication: Immunosuppressant drug therapy
  6. PREDNISONE [Concomitant]
     Active Substance: PREDNISONE
     Indication: Autoinflammatory disease
     Route: 065
  7. PREDNISONE [Concomitant]
     Active Substance: PREDNISONE
     Indication: Immunosuppressant drug therapy
     Route: 065
  8. CANAKINUMAB [Concomitant]
     Active Substance: CANAKINUMAB
     Indication: Autoinflammatory disease
     Route: 058
  9. CANAKINUMAB [Concomitant]
     Active Substance: CANAKINUMAB
     Indication: Immunosuppressant drug therapy
  10. HYDROXYCHLOROQUINE [Concomitant]
     Active Substance: HYDROXYCHLOROQUINE
     Indication: Whipple^s disease
     Route: 065
  11. COTRIMOXAZOLE [Concomitant]
     Active Substance: SULFAMETHOXAZOLE\TRIMETHOPRIM
     Indication: Whipple^s disease
     Route: 065
  12. CEFTRIAXONE [Concomitant]
     Active Substance: CEFTRIAXONE
     Indication: Whipple^s disease
     Route: 065

REACTIONS (1)
  - Off label use [Unknown]
